FAERS Safety Report 14190877 (Version 2)
Quarter: 2017Q4

REPORT INFORMATION
  Report Type: Spontaneous
  Country: CA (occurrence: CA)
  Receive Date: 20171115
  Receipt Date: 20171124
  Transmission Date: 20180321
  Serious: Yes (Death, Hospitalization, Other)
  Sender: FDA-Public Use
  Company Number: CA-PFIZER INC-2017460437

PATIENT
  Age: 39 Year
  Sex: Female

DRUGS (3)
  1. PRECEDEX [Suspect]
     Active Substance: DEXMEDETOMIDINE HYDROCHLORIDE
     Dosage: 0-0.8MCG/KG
     Route: 042
     Dates: start: 20170705
  2. DEXMEDETOMIDINE HYDROCHLORIDE. [Suspect]
     Active Substance: DEXMEDETOMIDINE HYDROCHLORIDE
     Indication: SEDATIVE THERAPY
     Dosage: 4.5 MCG/KG CUMULITIVE DOSE (IN 0.2 MCG/KG - 0.5 MCG/KG BOLUS DOSES)
     Route: 040
     Dates: start: 20170705, end: 20170706
  3. HYDROMORPHONE HYDROCHLORIDE. [Suspect]
     Active Substance: HYDROMORPHONE HYDROCHLORIDE

REACTIONS (5)
  - Haemorrhage [Fatal]
  - Wrong technique in product usage process [Unknown]
  - Accidental overdose [Unknown]
  - Agitation [Unknown]
  - Bradycardia [Recovered/Resolved]

NARRATIVE: CASE EVENT DATE: 201707
